FAERS Safety Report 6790451-2 (Version None)
Quarter: 2010Q2

REPORT INFORMATION
  Report Type: 
  Country: None (occurrence: None)
  Receive Date: 20100624
  Receipt Date: 20080303
  Transmission Date: 20101027
  Serious: Yes (Hospitalization, Other)
  Sender: FDA-Public Use
  Company Number: PFIZER INC-2008001334

PATIENT
  Sex: Male

DRUGS (6)
  1. SUTENT [Suspect]
     Indication: METASTATIC RENAL CELL CARCINOMA
     Dates: start: 20071221, end: 20071224
  2. DUONEB [Concomitant]
  3. NEXIUM [Concomitant]
     Route: 042
  4. HEPARIN [Concomitant]
     Route: 058
  5. LABETALOL HCL [Concomitant]
     Route: 042
  6. ZOSYN [Concomitant]
     Route: 042

REACTIONS (3)
  - GASTRIC PERFORATION [None]
  - SUPRAVENTRICULAR EXTRASYSTOLES [None]
  - VENTRICULAR EXTRASYSTOLES [None]
